FAERS Safety Report 8253336-0 (Version None)
Quarter: 2012Q2

REPORT INFORMATION
  Report Type: 
  Country: None (occurrence: None)
  Receive Date: 20120402
  Receipt Date: 20120312
  Transmission Date: 20120825
  Serious: No
  Sender: FDA-Public Use
  Company Number: US-AMGEN-USASP2012015987

PATIENT
  Age: 22 Year
  Sex: Male

DRUGS (6)
  1. HUMIRA [Concomitant]
     Indication: CROHN'S DISEASE
     Dosage: 40 MG, Q2WK
     Dates: start: 20120128
  2. MULTIVITAMIN                       /05027001/ [Concomitant]
  3. FISH OIL [Concomitant]
  4. ENBREL [Suspect]
     Indication: PRODUCT USED FOR UNKNOWN INDICATION
     Dosage: UNK
  5. MESALAMINE [Concomitant]
  6. PROBIOTICS [Concomitant]

REACTIONS (1)
  - DRUG DISPENSING ERROR [None]
